FAERS Safety Report 5612043-0 (Version None)
Quarter: 2008Q1

REPORT INFORMATION
  Report Type: 
  Country: None (occurrence: None)
  Receive Date: 20080128
  Receipt Date: 20080123
  Transmission Date: 20080703
  Serious: Yes (Hospitalization)
  Sender: FDA-Public Use
  Company Number: 2007BI010591

PATIENT
  Age: 56 Year
  Sex: Female
  Weight: 70 kg

DRUGS (10)
  1. TYSABRI [Suspect]
     Indication: MULTIPLE SCLEROSIS
     Dosage: 300 MG; QM; IV
     Route: 042
     Dates: start: 20070228
  2. VALPROATE SODIUM [Concomitant]
  3. LAMOTRIGINE [Concomitant]
  4. TEGRETOL [Concomitant]
  5. ASPIRIN [Concomitant]
  6. BACLOFEN [Concomitant]
  7. TIZANIDINE HCL [Concomitant]
  8. LEVOTHYROXINE SODIUM [Concomitant]
  9. DYTIDE [Concomitant]
  10. ALDACTONE [Concomitant]

REACTIONS (8)
  - ASTHENIA [None]
  - DISEASE RECURRENCE [None]
  - DRUG LEVEL INCREASED [None]
  - EPILEPSY [None]
  - OVERDOSE [None]
  - UNEVALUABLE EVENT [None]
  - VOMITING [None]
  - WHITE BLOOD CELL COUNT INCREASED [None]
